FAERS Safety Report 7262974-3 (Version None)
Quarter: 2011Q1

REPORT INFORMATION
  Report Type: 
  Country: None (occurrence: None)
  Receive Date: 20110130
  Receipt Date: 20101018
  Transmission Date: 20110831
  Serious: No
  Sender: FDA-Public Use
  Company Number: US-ABBOTT-10P-163-0678944-00

PATIENT
  Sex: Female

DRUGS (2)
  1. CIPRO [Suspect]
     Indication: INFECTION
  2. HUMIRA [Suspect]
     Indication: RHEUMATOID ARTHRITIS

REACTIONS (4)
  - TENDONITIS [None]
  - CYSTITIS [None]
  - INFECTION [None]
  - RHEUMATOID ARTHRITIS [None]
